FAERS Safety Report 23724730 (Version 1)
Quarter: 2024Q2

REPORT INFORMATION
  Report Type: Report from Study
  Country: US (occurrence: US)
  Receive Date: 20240409
  Receipt Date: 20240409
  Transmission Date: 20240716
  Serious: Yes (Death, Hospitalization, Other)
  Sender: FDA-Public Use
  Company Number: US-GILEAD-2024-0668321

PATIENT
  Age: 79 Year
  Sex: Male
  Weight: 99.2 kg

DRUGS (30)
  1. BREXUCABTAGENE AUTOLEUCEL [Suspect]
     Active Substance: BREXUCABTAGENE AUTOLEUCEL
     Indication: Haematological malignancy
     Dosage: 68 ML
     Route: 042
     Dates: start: 20240307, end: 20240307
  2. ALBUMIN HUMAN [Concomitant]
     Active Substance: ALBUMIN HUMAN
     Indication: Shock
     Dosage: UNK
     Dates: start: 20240331, end: 20240403
  3. CALCIUM [Concomitant]
     Active Substance: CALCIUM
     Dosage: UNK
     Dates: start: 20240329, end: 20240403
  4. LASIX [Concomitant]
     Active Substance: FUROSEMIDE
     Dosage: UNK
     Dates: start: 20240326, end: 20240401
  5. ULTRAVIST [Concomitant]
     Active Substance: IOPROMIDE
     Dosage: UNK
     Dates: start: 20240330, end: 20240330
  6. SOLU-MEDROL [Concomitant]
     Active Substance: METHYLPREDNISOLONE SODIUM SUCCINATE
     Dosage: UNK
     Dates: start: 20240326, end: 20240404
  7. SODIUM CHLORIDE [Concomitant]
     Active Substance: SODIUM CHLORIDE
     Dosage: UNK
     Dates: start: 20240326, end: 20240403
  8. SODIUM BICARBONATE [Concomitant]
     Active Substance: SODIUM BICARBONATE
     Dosage: UNK
     Dates: start: 20240322, end: 20240404
  9. STERILE WATER [Concomitant]
     Active Substance: WATER
     Dosage: UNK
     Dates: start: 20240330, end: 20240330
  10. CATHFLO ACTIVASE [Concomitant]
     Active Substance: ALTEPLASE
     Dosage: UNK
     Dates: start: 20240302, end: 20240404
  11. NORVASC [Concomitant]
     Active Substance: AMLODIPINE BESYLATE
     Dosage: UNK
     Dates: start: 20240322, end: 20240327
  12. TYLENOL [Concomitant]
     Active Substance: ACETAMINOPHEN
     Dosage: UNK
     Dates: start: 20240313, end: 20240404
  13. ZOVIRAX [Concomitant]
     Active Substance: ACYCLOVIR
     Dosage: UNK
     Dates: start: 20240317, end: 20240322
  14. TEMOVATE [Concomitant]
     Active Substance: CLOBETASOL PROPIONATE
     Dosage: UNK
     Dates: start: 20240321, end: 20240404
  15. DEXTROSE\WATER [Concomitant]
     Active Substance: DEXTROSE\WATER
     Dosage: UNK
     Dates: start: 20240323, end: 20240331
  16. DECADRON [Concomitant]
     Active Substance: DEXAMETHASONE
     Dosage: UNK
     Dates: start: 20240321, end: 20240323
  17. DEXTROSE [Concomitant]
     Active Substance: DEXTROSE\DEXTROSE MONOHYDRATE
     Dosage: UNK
     Dates: start: 20240329, end: 20240404
  18. APRESOLINE HYDROCHLORIDE [Concomitant]
     Active Substance: HYDRALAZINE HYDROCHLORIDE
     Dosage: UNK
     Dates: start: 20240327, end: 20240404
  19. NOVOLOG [Concomitant]
     Active Substance: INSULIN ASPART
     Dosage: UNK
     Dates: start: 20240314, end: 20240404
  20. INSULIN GLARGINE [Concomitant]
     Active Substance: INSULIN GLARGINE
     Dosage: UNK
     Dates: start: 20240324, end: 20240403
  21. VIMPAT [Concomitant]
     Active Substance: LACOSAMIDE
     Dosage: UNK
     Dates: start: 20240317, end: 20240404
  22. LIDODERM [Concomitant]
     Active Substance: LIDOCAINE
     Dosage: UNK
     Dates: start: 20240316, end: 20240404
  23. GLYDO [Concomitant]
     Active Substance: LIDOCAINE HYDROCHLORIDE ANHYDROUS
     Dosage: UNK
     Dates: start: 20240321, end: 20240402
  24. PRINIVIL [Concomitant]
     Active Substance: LISINOPRIL
     Dosage: UNK
     Dates: start: 20240328, end: 20240404
  25. IMODIUM A-D [Concomitant]
     Active Substance: LOPERAMIDE HYDROCHLORIDE
     Dosage: UNK
     Dates: start: 20240314, end: 20240404
  26. ROXICODONE [Concomitant]
     Active Substance: OXYCODONE HYDROCHLORIDE
     Dosage: UNK
     Dates: start: 20240330, end: 20240404
  27. OMEPRAZOLE [Concomitant]
     Active Substance: OMEPRAZOLE
     Dosage: UNK
     Dates: start: 20240314, end: 20240404
  28. SEROQUEL [Concomitant]
     Active Substance: QUETIAPINE FUMARATE
     Dosage: UNK
     Dates: start: 20240316, end: 20240404
  29. FLOMAX [Concomitant]
     Active Substance: TAMSULOSIN HYDROCHLORIDE
     Dosage: UNK
     Dates: start: 20240302, end: 20240404
  30. DESITIN [ZINC OXIDE] [Concomitant]
     Dosage: UNK
     Dates: start: 20240315, end: 20240404

REACTIONS (11)
  - Septic shock [Fatal]
  - Pneumonia [Not Recovered/Not Resolved]
  - Cerebrovascular accident [Not Recovered/Not Resolved]
  - Unresponsive to stimuli [Unknown]
  - Mental status changes [Unknown]
  - Acute respiratory failure [Unknown]
  - Hypoxia [Unknown]
  - Acute kidney injury [Unknown]
  - Hyperkalaemia [Unknown]
  - Metabolic acidosis [Unknown]
  - Hyperchloraemia [Unknown]

NARRATIVE: CASE EVENT DATE: 20240402
